FAERS Safety Report 7769569-3 (Version None)
Quarter: 2011Q3

REPORT INFORMATION
  Report Type: 
  Country: None (occurrence: None)
  Receive Date: 20110922
  Receipt Date: 20100810
  Transmission Date: 20111222
  Serious: No
  Sender: FDA-Public Use
  Company Number: US-ASTRAZENECA-2008UW04321

PATIENT
  Age: 14582 Day
  Sex: Female
  Weight: 105.2 kg

DRUGS (16)
  1. SEROQUEL [Suspect]
     Dosage: 25 MG TO 200 MG
     Route: 048
     Dates: start: 20070122, end: 20071017
  2. XANAX [Concomitant]
     Dosage: 0.25-2 MG
     Dates: start: 19971111
  3. SEROQUEL [Suspect]
     Route: 048
     Dates: start: 20061228
  4. SEROQUEL [Suspect]
     Route: 048
     Dates: start: 20070301
  5. SEROQUEL [Suspect]
     Route: 048
     Dates: start: 20070314
  6. SEROQUEL [Suspect]
     Route: 048
     Dates: start: 20070126
  7. SEROQUEL [Suspect]
     Dosage: 25 MG TO 200 MG
     Route: 048
     Dates: start: 20070122, end: 20071017
  8. TRAZODONE HYDROCHLORIDE [Concomitant]
     Dosage: 50-100 MG
     Dates: start: 20060315
  9. GEODON [Concomitant]
     Dosage: 40-60 MG
     Dates: start: 20071107
  10. SEROQUEL [Suspect]
     Indication: DEPRESSION
     Dosage: 100-200 MG
     Route: 048
     Dates: start: 20060901, end: 20070901
  11. SEROQUEL [Suspect]
     Route: 048
     Dates: start: 20061228
  12. SEROQUEL [Suspect]
     Route: 048
     Dates: start: 20070126
  13. SEROQUEL [Suspect]
     Indication: ANXIETY
     Dosage: 100-200 MG
     Route: 048
     Dates: start: 20060901, end: 20070901
  14. SEROQUEL [Suspect]
     Route: 048
     Dates: start: 20070301
  15. SEROQUEL [Suspect]
     Route: 048
     Dates: start: 20070314
  16. LEXAPRO [Concomitant]
     Dosage: 10-20 MG
     Dates: start: 20060315

REACTIONS (6)
  - DIABETES MELLITUS [None]
  - TYPE 2 DIABETES MELLITUS [None]
  - HYPERLIPIDAEMIA [None]
  - BLOOD CHOLESTEROL INCREASED [None]
  - WEIGHT INCREASED [None]
  - OBESITY [None]
